FAERS Safety Report 7382866-9 (Version None)
Quarter: 2011Q1

REPORT INFORMATION
  Report Type: 
  Country: None (occurrence: None)
  Receive Date: 20110330
  Receipt Date: 20101015
  Transmission Date: 20110831
  Serious: Yes (Hospitalization, Other)
  Sender: FDA-Public Use
  Company Number: US-BAYER-201015977NA

PATIENT
  Sex: Female
  Weight: 68.934 kg

DRUGS (6)
  1. UNKNOWN DRUGS [Concomitant]
  2. YAZ [Suspect]
     Indication: CONTRACEPTION
     Route: 048
     Dates: start: 20000101, end: 20080101
  3. LEXAPRO [Concomitant]
  4. YASMIN [Suspect]
     Indication: CONTRACEPTION
     Route: 048
     Dates: start: 20000101, end: 20080101
  5. IBUPROFEN [Concomitant]
  6. IMITREX [Concomitant]

REACTIONS (1)
  - CHOLECYSTECTOMY [None]
